FAERS Safety Report 14356092 (Version 1)
Quarter: 2018Q1

REPORT INFORMATION
  Report Type: Spontaneous
  Country: US (occurrence: US)
  Receive Date: 20180105
  Receipt Date: 20180105
  Transmission Date: 20180509
  Serious: Yes (Hospitalization)
  Sender: FDA-Public Use
  Company Number: US-ELI_LILLY_AND_COMPANY-US201712011831

PATIENT
  Age: 64 Year
  Sex: Female

DRUGS (3)
  1. HUMALOG [Suspect]
     Active Substance: INSULIN LISPRO
     Indication: DIABETES MELLITUS
     Dosage: UNK, PRN
     Route: 058
     Dates: start: 20170614, end: 20170627
  2. HUMALOG [Suspect]
     Active Substance: INSULIN LISPRO
     Dosage: UNK, PRN
     Route: 058
  3. HUMALOG [Suspect]
     Active Substance: INSULIN LISPRO
     Indication: TYPE 2 DIABETES MELLITUS
     Dosage: UNK, PRN
     Route: 058
     Dates: start: 20170627

REACTIONS (9)
  - Intra-abdominal fluid collection [Recovered/Resolved]
  - Malaise [Recovered/Resolved]
  - Blood glucose increased [Recovered/Resolved]
  - Injection site pain [Recovered/Resolved]
  - Blood glucose increased [Unknown]
  - Pancreas infection [Recovered/Resolved]
  - Post procedural infection [Recovered/Resolved]
  - Tremor [Unknown]
  - Drug dose omission [Unknown]

NARRATIVE: CASE EVENT DATE: 201706
